FAERS Safety Report 22337757 (Version 1)
Quarter: 2023Q2

REPORT INFORMATION
  Report Type: Spontaneous
  Country: US (occurrence: US)
  Receive Date: 20230518
  Receipt Date: 20230518
  Transmission Date: 20230722
  Serious: No
  Sender: FDA-Public Use
  Company Number: US-COLLEGIUM PHARMACEUTICAL, INC.-2022CGM00340

PATIENT
  Sex: Female

DRUGS (1)
  1. XTAMPZA ER [Suspect]
     Active Substance: OXYCODONE
     Dosage: UNK, ONCE
     Route: 048

REACTIONS (4)
  - Confusional state [Unknown]
  - Nonspecific reaction [Unknown]
  - Dizziness [Unknown]
  - Product substitution issue [Recovered/Resolved]
